FAERS Safety Report 12120112 (Version 1)
Quarter: 2016Q1

REPORT INFORMATION
  Report Type: Spontaneous
  Country: US (occurrence: US)
  Receive Date: 20160226
  Receipt Date: 20160226
  Transmission Date: 20160526
  Serious: No
  Sender: FDA-Public Use
  Company Number: US-ASTRAZENECA-2016SE16374

PATIENT
  Sex: Female
  Weight: 73 kg

DRUGS (6)
  1. PRAVASTATIN [Suspect]
     Active Substance: PRAVASTATIN\PRAVASTATIN SODIUM
     Indication: BLOOD TRIGLYCERIDES INCREASED
     Route: 065
  2. LIPITOR [Suspect]
     Active Substance: ATORVASTATIN CALCIUM
     Dosage: GENERIC, 40 MG ONE PILL AT NIGHT
     Route: 065
     Dates: start: 201311
  3. CRESTOR [Suspect]
     Active Substance: ROSUVASTATIN CALCIUM
     Route: 048
  4. PRAVASTATIN [Suspect]
     Active Substance: PRAVASTATIN\PRAVASTATIN SODIUM
     Indication: BLOOD CHOLESTEROL INCREASED
     Route: 065
  5. PRAVASTATIN SODIUM. [Suspect]
     Active Substance: PRAVASTATIN SODIUM
     Route: 065
     Dates: start: 201403
  6. PRAVASTATIN SODIUM. [Suspect]
     Active Substance: PRAVASTATIN SODIUM
     Route: 065
     Dates: start: 2014

REACTIONS (17)
  - Pain [Unknown]
  - Skin discolouration [Unknown]
  - Musculoskeletal disorder [Unknown]
  - Erythema [Unknown]
  - Dry mouth [Unknown]
  - Pain in extremity [Unknown]
  - Lipids increased [Unknown]
  - Drug ineffective [Unknown]
  - Hepatic enzyme increased [Unknown]
  - Paraesthesia [Unknown]
  - Limb injury [Unknown]
  - Condition aggravated [Unknown]
  - Fall [Unknown]
  - Abdominal distension [Unknown]
  - Rib fracture [Unknown]
  - Muscle spasms [Unknown]
  - Muscular weakness [Unknown]
